FAERS Safety Report 19932189 (Version 1)
Quarter: 2021Q4

REPORT INFORMATION
  Report Type: Report from Study
  Country: DE (occurrence: DE)
  Receive Date: 20211008
  Receipt Date: 20211008
  Transmission Date: 20220304
  Serious: Yes (Hospitalization, Other)
  Sender: FDA-Public Use
  Company Number: DE-BRISTOL-MYERS SQUIBB COMPANY-BMS-2021-098903

PATIENT
  Age: 53 Year
  Sex: Female
  Weight: 78 kg

DRUGS (21)
  1. ELOTUZUMAB [Suspect]
     Active Substance: ELOTUZUMAB
     Indication: Plasma cell myeloma
     Dosage: 750 MILLIGRAM
     Route: 042
     Dates: start: 20210331, end: 20210331
  2. DEXAMETHASONE [Suspect]
     Active Substance: DEXAMETHASONE
     Indication: Plasma cell myeloma
     Dosage: 28 MILLIGRAM
     Route: 048
     Dates: start: 20210331, end: 20210331
  3. IBERDOMIDE [Suspect]
     Active Substance: IBERDOMIDE
     Indication: Plasma cell myeloma
     Dosage: 0.3 MILLIGRAM
     Route: 048
     Dates: start: 20210331, end: 20210413
  4. CALCIUM ASCORBAT [Concomitant]
     Indication: Asthenia
     Dosage: 500 MG/G 2 DOSE IN 1 UNITS OF INTERVAL
     Route: 048
     Dates: start: 202103
  5. PROGESTERONE [Concomitant]
     Active Substance: PROGESTERONE
     Indication: Insomnia
     Dosage: 200 MILLIGRAM, QD
     Route: 048
     Dates: start: 202007
  6. FAMOTIDINE [Concomitant]
     Active Substance: FAMOTIDINE
     Indication: Irritable bowel syndrome
     Dosage: 40 MILLIGRAM, QD
     Route: 048
     Dates: start: 202010
  7. LACTOFERRIN [Concomitant]
     Active Substance: LACTOFERRIN
     Indication: Insomnia
     Dosage: 99 DOSAGE (200 MG)
     Route: 048
     Dates: start: 202003
  8. RUPATADINE [Concomitant]
     Active Substance: RUPATADINE
     Indication: Food intolerance
     Dosage: 10 MILLIGRAM, BID
     Route: 048
     Dates: start: 202010
  9. SELENASE [SELENIDE SODIUM] [Concomitant]
     Indication: Rhinitis allergic
     Dosage: 200 MILLIGRAM, QD
     Route: 048
     Dates: start: 2017
  10. ZOLEDRONIC ACID [Concomitant]
     Active Substance: ZOLEDRONIC ACID
     Indication: Prophylaxis
     Dosage: 4 MILLIGRAM, Q4WK
     Route: 042
     Dates: start: 201908
  11. ACYCLOVIR [Concomitant]
     Active Substance: ACYCLOVIR
     Indication: Prophylaxis
     Dosage: 400 MILLIGRAM, QD
     Route: 048
     Dates: start: 20210401
  12. AMOXICILLIN\CLAVULANIC ACID [Concomitant]
     Active Substance: AMOXICILLIN\CLAVULANIC ACID
     Indication: Osteonecrosis of jaw
     Dosage: 875/125 MG QD
     Route: 048
     Dates: start: 20210503
  13. CETIRIZINE [Concomitant]
     Active Substance: CETIRIZINE HYDROCHLORIDE
     Indication: Rhinitis allergic
     Dosage: 10 MILLIGRAM, QD
     Route: 048
     Dates: start: 20210629
  14. CHLORHEXAMED [Concomitant]
     Indication: Osteonecrosis of jaw
     Dosage: 1 PERCENT TID
     Route: 061
     Dates: start: 20210503
  15. CHLORHEXAMED FORTE [Concomitant]
     Indication: Osteonecrosis of jaw
     Dosage: 0.2 PERCENT TID
     Route: 061
     Dates: start: 20210503
  16. ENOXAPARIN SODIUM [Concomitant]
     Active Substance: ENOXAPARIN SODIUM
     Indication: Prophylaxis
     Dosage: 40 MILLIGRAM, QD
     Route: 058
     Dates: start: 20210330
  17. HYALURONIC ACID [Concomitant]
     Active Substance: HYALURONIC ACID
     Indication: Prophylaxis
     Dosage: 1 MG 99 SEPARTE DOSAGE
     Route: 065
     Dates: start: 20210707
  18. ACETAMINOPHEN [Concomitant]
     Active Substance: ACETAMINOPHEN
     Indication: Prophylaxis
     Dosage: 1 GRAM, QWK
     Route: 048
     Dates: start: 20210331
  19. CLEMASTINE [Concomitant]
     Active Substance: CLEMASTINE
     Indication: Prophylaxis
     Dosage: 2 MILLIGRAM, Q2WK
     Route: 042
     Dates: start: 20210331
  20. ERGOCALCIFEROL [Concomitant]
     Active Substance: ERGOCALCIFEROL
     Indication: Prophylaxis
     Dosage: 1 MILLILITER, QD
     Route: 048
     Dates: start: 20210609
  21. VITAMIN D3 [Concomitant]
     Active Substance: CHOLECALCIFEROL
     Indication: Prophylaxis
     Dosage: 5000 INTERNATIONAL UNIT, QD
     Dates: start: 20210506

REACTIONS (1)
  - Listeriosis [Not Recovered/Not Resolved]

NARRATIVE: CASE EVENT DATE: 20210924
